FAERS Safety Report 8258382-9 (Version None)
Quarter: 2012Q2

REPORT INFORMATION
  Report Type: 
  Country: None (occurrence: None)
  Receive Date: 20120404
  Receipt Date: 20120323
  Transmission Date: 20120825
  Serious: Yes (Other)
  Sender: FDA-Public Use
  Company Number: US-COVIDIEN/TYCO HEALTHCARE/MALLINCKRODT-T201201338

PATIENT
  Age: 59 Year
  Sex: Male

DRUGS (2)
  1. SODIUM IODIDE I 131 [Suspect]
     Indication: THYROID CANCER
     Dosage: CUMULATIVE DOSE 558.2 MCI
  2. TRIIODOTHYRONINE [Concomitant]
     Dosage: ADMINISTERED FOR 4 WEEKS AFTER THYROIDECTOMY

REACTIONS (1)
  - RESTRICTIVE PULMONARY DISEASE [None]
